FAERS Safety Report 21734317 (Version 1)
Quarter: 2022Q4

REPORT INFORMATION
  Report Type: Report from Study
  Country: JP (occurrence: JP)
  Receive Date: 20221215
  Receipt Date: 20221215
  Transmission Date: 20230113
  Serious: Yes (Hospitalization, Other)
  Sender: FDA-Public Use
  Company Number: JP-BRISTOL-MYERS SQUIBB COMPANY-BMS-2018-036566

PATIENT
  Age: 66 Year
  Sex: Male
  Weight: 60 kg

DRUGS (27)
  1. ABRAXANE [Suspect]
     Active Substance: PACLITAXEL
     Indication: Gastric cancer recurrent
     Dosage: 06-JUN-2018: 100MG/SQ. M?80 MILLIGRAM/SQ. METER, QWK
     Route: 042
     Dates: start: 20180704
  2. RAMUCIRUMAB [Suspect]
     Active Substance: RAMUCIRUMAB
     Indication: Gastric cancer recurrent
     Dosage: 8 MILLIGRAM/KILOGRAM, Q2WK
     Route: 042
     Dates: start: 20180704
  3. CAPECITABINE [Suspect]
     Active Substance: CAPECITABINE
     Indication: Gastric cancer
     Route: 048
     Dates: start: 20171129, end: 20180418
  4. OXALIPLATIN [Suspect]
     Active Substance: OXALIPLATIN
     Indication: Gastric cancer recurrent
     Route: 042
     Dates: start: 20171129, end: 20180418
  5. ITRACONAZOLE [Concomitant]
     Active Substance: ITRACONAZOLE
     Indication: Mucosal infection
     Dosage: 10 MILLILITER, Q12H
     Route: 048
     Dates: start: 20180131
  6. HEPARINOID [Concomitant]
     Indication: Dry skin prophylaxis
     Dosage: APPROPRIATE DOSE, PRN
     Route: 061
     Dates: start: 20171129
  7. SODIUM GUALENATE MONOHYDRATE [Concomitant]
     Active Substance: SODIUM GUALENATE MONOHYDRATE
     Indication: Stomatitis
     Dosage: APPROPRIATED DOSE, PRN
     Route: 002
     Dates: start: 20171206
  8. METFORMIN HYDROCHLORIDE [Concomitant]
     Active Substance: METFORMIN HYDROCHLORIDE
     Indication: Product used for unknown indication
     Dosage: UNK
     Dates: start: 20180206
  9. SITAGLIPTIN PHOSPHATE [Concomitant]
     Active Substance: SITAGLIPTIN PHOSPHATE
     Indication: Product used for unknown indication
     Dosage: UNK
     Dates: start: 20180206
  10. MICONAZOLE [Concomitant]
     Active Substance: MICONAZOLE
     Indication: Mucosal infection
     Dosage: UNK
     Route: 061
     Dates: start: 20180206
  11. POLAPREZINC [Concomitant]
     Active Substance: POLAPREZINC
     Indication: Dysgeusia
     Dosage: 75 MILLIGRAM, Q12H
     Route: 048
     Dates: start: 20180206
  12. GLIMEPIRIDE [Concomitant]
     Active Substance: GLIMEPIRIDE
     Indication: Diabetes mellitus
     Dosage: 0.5 MILLIGRAM, Q8H: 27-FEB-2018: ORAL?1 MG IN AM, 0.5 MG IN PM, EVERYDAY
     Route: 048
  13. LEVOTHYROXINE SODIUM [Concomitant]
     Active Substance: LEVOTHYROXINE SODIUM
     Indication: Hypothyroidism
     Dosage: 100 MICROGRAM, EVERYDAY
     Route: 048
     Dates: start: 20180509
  14. BILASTINE [Concomitant]
     Active Substance: BILASTINE
     Indication: Rhinitis allergic
     Dosage: 20 MILLIGRAM, EVERYDAY
     Route: 048
     Dates: start: 20180320
  15. PREGABALIN [Concomitant]
     Active Substance: PREGABALIN
     Indication: Neuropathy peripheral
     Dosage: 150 MILLIGRAM, Q12H
     Route: 048
     Dates: start: 20180411
  16. VONOPRAZAN FUMARATE [Concomitant]
     Active Substance: VONOPRAZAN FUMARATE
     Indication: Prophylaxis against gastrointestinal ulcer
     Dosage: 20 MILLIGRAM, EVERY DAY
     Route: 048
     Dates: start: 201611
  17. TAMSULOSIN HYDROCHLORIDE [Concomitant]
     Active Substance: TAMSULOSIN HYDROCHLORIDE
     Indication: Benign prostatic hyperplasia
     Dosage: 0.2 MILLIGRAM
     Route: 048
     Dates: start: 20151210
  18. ICOSAPENT ETHYL [Concomitant]
     Active Substance: ICOSAPENT ETHYL
     Indication: Peripheral arterial occlusive disease
     Dosage: 1 DOSAGE FORM, Q8H
     Route: 048
     Dates: start: 20170901
  19. DICLOFENAC SODIUM [Concomitant]
     Active Substance: DICLOFENAC SODIUM
     Indication: Stomatitis
     Dosage: APPROPRIATE DOSE, PRN
     Route: 002
     Dates: start: 20171220
  20. TRANEXAMIC ACID [Concomitant]
     Active Substance: TRANEXAMIC ACID
     Indication: Stomatitis
     Dosage: APPROPRIATE DOSE, PRN
     Route: 002
     Dates: start: 20171220
  21. SODIUM BICARBONATE [Concomitant]
     Active Substance: SODIUM BICARBONATE
     Indication: Stomatitis
     Dosage: APPROPRIATE DOSE, PRN
     Route: 002
     Dates: start: 20171220
  22. METFORMIN HYDROCHLORIDE [Concomitant]
     Active Substance: METFORMIN HYDROCHLORIDE
     Indication: Diabetes mellitus
     Dosage: 500 MILLIGRAM, Q12H
     Route: 048
     Dates: start: 20180206
  23. SITAGLIPTIN [Concomitant]
     Active Substance: SITAGLIPTIN
     Indication: Diabetes mellitus
     Dosage: 50 MILLIGRAM, EVERYDAY
     Route: 048
     Dates: start: 20180206
  24. MAGNESIUM OXIDE [Concomitant]
     Active Substance: MAGNESIUM OXIDE
     Indication: Constipation
     Dosage: 330 MILLIGRAM, PRN
     Route: 048
     Dates: start: 20180416
  25. LULICONAZOLE [Concomitant]
     Active Substance: LULICONAZOLE
     Indication: Tinea pedis
     Dosage: APPROPRIATE DOSE, EVERYDAY
     Route: 061
     Dates: start: 20180711
  26. CORTRIL [Concomitant]
     Active Substance: HYDROCORTISONE
     Indication: Cortisol decreased
     Dosage: 10 MILLIGRAM, Q12H
     Route: 048
     Dates: start: 20180711
  27. LOXOPROFEN [Concomitant]
     Active Substance: LOXOPROFEN
     Indication: Arthralgia
     Dosage: 60 MILLIGRAM, PRN
     Route: 048
     Dates: start: 20180711

REACTIONS (2)
  - Interstitial lung disease [Recovered/Resolved]
  - Dehydration [Recovered/Resolved]

NARRATIVE: CASE EVENT DATE: 20180416
